FAERS Safety Report 22536989 (Version 1)
Quarter: 2023Q2

REPORT INFORMATION
  Report Type: Spontaneous
  Country: US (occurrence: US)
  Receive Date: 20230608
  Receipt Date: 20230608
  Transmission Date: 20230721
  Serious: Yes (Life-Threatening, Hospitalization, Other)
  Sender: FDA-Public Use
  Company Number: US-TEVA-2023-US-2893221

PATIENT
  Age: 6 Year
  Sex: Female

DRUGS (4)
  1. METHOTREXATE [Suspect]
     Active Substance: METHOTREXATE
     Indication: Acute lymphocytic leukaemia
     Route: 037
  2. METHYLPREDNISOLONE [Suspect]
     Active Substance: METHYLPREDNISOLONE
     Indication: Immune effector cell-associated neurotoxicity syndrome
     Route: 065
  3. TISAGENLECLEUCEL [Suspect]
     Active Substance: TISAGENLECLEUCEL
     Indication: Acute lymphocytic leukaemia
     Dosage: RECEIVED INFUSION
     Route: 065
  4. ANAKINRA [Suspect]
     Active Substance: ANAKINRA
     Indication: Immune effector cell-associated neurotoxicity syndrome
     Dosage: 8 MG/KG DAILY;
     Route: 065

REACTIONS (6)
  - Neurotoxicity [Recovered/Resolved]
  - Cytokine release syndrome [Recovered/Resolved]
  - Immune effector cell-associated neurotoxicity syndrome [Recovered/Resolved]
  - Coma [Recovered/Resolved]
  - Brain oedema [Recovered/Resolved]
  - Drug ineffective [Unknown]
